FAERS Safety Report 8487129-6 (Version None)
Quarter: 2012Q3

REPORT INFORMATION
  Report Type: 
  Country: None (occurrence: None)
  Receive Date: 20120704
  Receipt Date: 20120629
  Transmission Date: 20120928
  Serious: Yes (Life-Threatening, Hospitalization)
  Sender: FDA-Public Use
  Company Number: PHHY2012NO056725

PATIENT
  Sex: Male

DRUGS (1)
  1. CLOZAPINE [Suspect]

REACTIONS (5)
  - TACHYCARDIA [None]
  - CHEST PAIN [None]
  - TROPONIN T INCREASED [None]
  - BRAIN NATRIURETIC PEPTIDE INCREASED [None]
  - PNEUMONIA [None]
